FAERS Safety Report 11965135 (Version 1)
Quarter: 2016Q1

REPORT INFORMATION
  Report Type: Spontaneous
  Country: US (occurrence: US)
  Receive Date: 20160127
  Receipt Date: 20160127
  Transmission Date: 20160526
  Serious: No
  Sender: FDA-Public Use
  Company Number: US-PFIZER INC-2016040194

PATIENT

DRUGS (1)
  1. DILANTIN [Suspect]
     Active Substance: PHENYTOIN
     Dosage: 330 MG, UNK (3 100 MG IN THE MORNING ALONG WITH THE 30 MG OF DILANTIN)

REACTIONS (1)
  - Insomnia [Unknown]
